FAERS Safety Report 6580139-5 (Version None)
Quarter: 2010Q1

REPORT INFORMATION
  Report Type: 
  Country: None (occurrence: None)
  Receive Date: 20100212
  Receipt Date: 20100205
  Transmission Date: 20100710
  Serious: Yes (Hospitalization)
  Sender: FDA-Public Use
  Company Number: FR-TEVA-223541ISR

PATIENT
  Sex: Male

DRUGS (9)
  1. FLUOROURACIL [Suspect]
     Indication: TONGUE NEOPLASM MALIGNANT STAGE UNSPECIFIED
     Route: 042
     Dates: start: 20090817, end: 20090817
  2. FLUOROURACIL [Concomitant]
  3. CISPLATIN [Suspect]
     Indication: TONGUE NEOPLASM MALIGNANT STAGE UNSPECIFIED
     Route: 042
     Dates: start: 20090817, end: 20090817
  4. CETUXIMAB [Suspect]
     Indication: TONGUE NEOPLASM MALIGNANT STAGE UNSPECIFIED
     Route: 042
     Dates: start: 20090817, end: 20090831
  5. DEXCHLORPHENIRAMINE MALEATE [Suspect]
     Indication: PREMEDICATION
     Route: 048
     Dates: start: 20090817, end: 20090831
  6. METHYLPREDNISOLONE [Suspect]
     Route: 042
     Dates: start: 20090817, end: 20090831
  7. ONDANSETRON HYDROCHLORIDE [Suspect]
     Indication: PREMEDICATION
     Route: 042
     Dates: start: 20090817, end: 20090817
  8. APREPITANT [Suspect]
     Indication: PREMEDICATION
     Route: 048
     Dates: start: 20090818, end: 20090818
  9. APREPITANT [Suspect]
     Route: 048
     Dates: start: 20090819, end: 20090819

REACTIONS (3)
  - AMAUROSIS [None]
  - GLARE [None]
  - MALAISE [None]
